FAERS Safety Report 6011420-6 (Version None)
Quarter: 2008Q4

REPORT INFORMATION
  Report Type: 
  Country: None (occurrence: None)
  Receive Date: 20081218
  Receipt Date: 19990224
  Transmission Date: 20090506
  Serious: Yes (Death, Hospitalization, Other)
  Sender: FDA-Public Use
  Company Number: US-ROCHE-201576

PATIENT
  Age: 67 Year
  Sex: Female
  Weight: 139.3 kg

DRUGS (7)
  1. ROCEPHIN [Suspect]
     Indication: DRUG USE FOR UNKNOWN INDICATION
     Route: 065
     Dates: start: 19990216, end: 19990218
  2. VERSED [Suspect]
     Indication: SEDATION
     Dosage: TITRATED AS NEEDED.
     Route: 042
     Dates: start: 19990218, end: 19990222
  3. TROVAN [Suspect]
     Indication: DRUG USE FOR UNKNOWN INDICATION
     Route: 042
     Dates: start: 19990218, end: 19990224
  4. INSULIN [Concomitant]
     Route: 058
     Dates: end: 19990225
  5. DIURETICS [Concomitant]
     Dates: start: 19990216, end: 19990224
  6. PROCAINAMIDE [Concomitant]
     Indication: ATRIAL FIBRILLATION
  7. COUMADIN [Concomitant]
     Indication: ATRIAL FIBRILLATION

REACTIONS (19)
  - ANAEMIA [None]
  - ATRIAL FIBRILLATION [None]
  - BLOOD ALBUMIN DECREASED [None]
  - BLOOD BILIRUBIN INCREASED [None]
  - BLOOD CREATININE INCREASED [None]
  - BLOOD GASES ABNORMAL [None]
  - BLOOD THYROID STIMULATING HORMONE DECREASED [None]
  - BLOOD UREA INCREASED [None]
  - DEATH [None]
  - FUNGAEMIA [None]
  - HEPATIC ENZYME INCREASED [None]
  - HYPERCHOLESTEROLAEMIA [None]
  - HYPERGLYCAEMIA [None]
  - HYPERKALAEMIA [None]
  - HYPERNATRAEMIA [None]
  - HYPERTHERMIA [None]
  - HYPOCALCAEMIA [None]
  - HYPONATRAEMIA [None]
  - LEUKOCYTOSIS [None]
